FAERS Safety Report 8586316-6 (Version None)
Quarter: 2012Q3

REPORT INFORMATION
  Report Type: 
  Country: None (occurrence: None)
  Receive Date: 20120810
  Receipt Date: 19940119
  Transmission Date: 20120928
  Serious: Yes (Death, Hospitalization)
  Sender: FDA-Public Use
  Company Number: US-ROCHE-1098863

PATIENT
  Sex: Female

DRUGS (8)
  1. SLOW-K [Concomitant]
  2. LASIX [Concomitant]
  3. ACTIVASE [Suspect]
     Indication: MYOCARDIAL INFARCTION
  4. VASOTEC [Concomitant]
  5. LORAZEPAM [Concomitant]
  6. APRODINE [Concomitant]
  7. CARAFATE [Concomitant]
  8. CARDIZEM SR [Concomitant]

REACTIONS (5)
  - RENAL FAILURE [None]
  - ATRIAL FIBRILLATION [None]
  - CARDIAC FAILURE CONGESTIVE [None]
  - HYPOTENSION [None]
  - SINUS TACHYCARDIA [None]
